FAERS Safety Report 14243514 (Version 1)
Quarter: 2017Q4

REPORT INFORMATION
  Report Type: Report from Study
  Country: RO (occurrence: RO)
  Receive Date: 20171201
  Receipt Date: 20171201
  Transmission Date: 20180321
  Serious: Yes (Other)
  Sender: FDA-Public Use
  Company Number: RO-VIIV HEALTHCARE LIMITED-RO2017GSK181218

PATIENT

DRUGS (2)
  1. TENOFOVIR DISOPROXIL FUMARATE. [Suspect]
     Active Substance: TENOFOVIR DISOPROXIL FUMARATE
     Indication: HIV INFECTION
  2. ABACAVIR SULPHATE [Suspect]
     Active Substance: ABACAVIR
     Indication: HIV INFECTION

REACTIONS (4)
  - Pathogen resistance [Unknown]
  - Virologic failure [Unknown]
  - Viral mutation identified [Unknown]
  - Drug resistance [Unknown]
